FAERS Safety Report 8447068-3 (Version None)
Quarter: 2012Q2

REPORT INFORMATION
  Report Type: 
  Country: None (occurrence: None)
  Receive Date: 20120619
  Receipt Date: 20120614
  Transmission Date: 20120825
  Serious: Yes (Hospitalization)
  Sender: FDA-Public Use
  Company Number: PHHO2012NL005251

PATIENT
  Sex: Male
  Weight: 86 kg

DRUGS (5)
  1. METOPROLOL SUCCINATE [Suspect]
     Indication: CORONARY ARTERY DISEASE
     Dosage: 25 MG, UNK
     Dates: start: 20120220, end: 20120224
  2. BLINDED NO TREATMENT RECEIVED [Suspect]
     Indication: CARDIAC FAILURE
     Dosage: CODE NOT BROKEN
     Route: 048
     Dates: start: 20110331, end: 20110412
  3. BLINDED ALISKIREN [Suspect]
     Indication: CARDIAC FAILURE
     Dosage: CODE NOT BROKEN
     Route: 048
     Dates: start: 20110331, end: 20110412
  4. ENALAPRIL MALEATE [Suspect]
     Indication: CARDIAC FAILURE
     Dosage: CODE NOT BROKEN
     Route: 048
     Dates: start: 20110331, end: 20110412
  5. INDOMETHACIN [Suspect]
     Indication: GOUT

REACTIONS (4)
  - CIRCULATORY COLLAPSE [None]
  - CARDIAC FAILURE [None]
  - SINUS BRADYCARDIA [None]
  - TREATMENT NONCOMPLIANCE [None]
